FAERS Safety Report 24291359 (Version 1)
Quarter: 2024Q3

REPORT INFORMATION
  Report Type: Spontaneous
  Country: US (occurrence: None)
  Receive Date: 20240906
  Receipt Date: 20240906
  Transmission Date: 20241017
  Serious: No
  Sender: DOMPE FARMACEUTICI
  Company Number: US-FARMAPROD-202308-202308-2528

PATIENT
  Sex: Male
  Weight: 78.02 kg

DRUGS (25)
  1. OXERVATE [Suspect]
     Active Substance: CENEGERMIN-BKBJ
     Indication: Neurotrophic keratopathy
     Route: 047
     Dates: start: 20230627
  2. HUMALOG [Concomitant]
     Active Substance: INSULIN LISPRO
     Dosage: KWIKPEN U-100 100/ML INSULIN PEN
  3. MONTELUKAST SODIUM [Concomitant]
     Active Substance: MONTELUKAST\MONTELUKAST SODIUM
  4. SPIRONOLACTONE [Concomitant]
     Active Substance: SPIRONOLACTONE
  5. LAMOTRIGINE [Concomitant]
     Active Substance: LAMOTRIGINE
  6. ASPIRIN [Concomitant]
     Active Substance: ASPIRIN
  7. DOCUSATE SODIUM [Concomitant]
     Active Substance: DOCUSATE SODIUM
  8. BUSPIRONE HCL [Concomitant]
     Active Substance: BUSPIRONE HYDROCHLORIDE
  9. BACLOFEN [Concomitant]
     Active Substance: BACLOFEN
  10. JANUVIA [Concomitant]
     Active Substance: SITAGLIPTIN PHOSPHATE
  11. JANUVIA [Concomitant]
     Active Substance: SITAGLIPTIN PHOSPHATE
  12. TAMSULOSIN HYDROCHLORIDE [Concomitant]
     Active Substance: TAMSULOSIN HYDROCHLORIDE
  13. OXYCODONE HYDROCHLORIDE [Concomitant]
     Active Substance: OXYCODONE HYDROCHLORIDE
  14. CARVEDILOL [Concomitant]
     Active Substance: CARVEDILOL
  15. ALPRAZOLAM [Concomitant]
     Active Substance: ALPRAZOLAM
  16. TIMOLOL MALEATE [Concomitant]
     Active Substance: TIMOLOL MALEATE
  17. CLONIDINE [Concomitant]
     Active Substance: CLONIDINE
     Dosage: 0.1MG/24HR PATCH TRANSDERMAL WEEKLY
  18. ELIQUIS [Concomitant]
     Active Substance: APIXABAN
  19. LISINOPRIL [Concomitant]
     Active Substance: LISINOPRIL
  20. TRADJENTA [Concomitant]
     Active Substance: LINAGLIPTIN
  21. VITAMIN D2 [Concomitant]
     Active Substance: ERGOCALCIFEROL
  22. GABAPENTIN [Concomitant]
     Active Substance: GABAPENTIN
  23. LEVEMIR [Concomitant]
     Active Substance: INSULIN DETEMIR
     Dosage: FLEXTOUCH 100/ML (3) INSULIN PEN
  24. LATANOPROST [Concomitant]
     Active Substance: LATANOPROST
  25. BOTOX [Concomitant]
     Active Substance: ONABOTULINUMTOXINA
     Dosage: VIAL

REACTIONS (1)
  - Eye pain [Unknown]
